FAERS Safety Report 8924666 (Version 1)
Quarter: 2012Q4

REPORT INFORMATION
  Report Type: Spontaneous
  Country: US (occurrence: None)
  Receive Date: 20121116
  Receipt Date: 20121116
  Transmission Date: 20130627
  Serious: Yes (Death)
  Sender: FDA-Public Use
  Company Number: FDB-2012-044

PATIENT
  Age: 67 Year
  Sex: Male

DRUGS (12)
  1. TECHNETIUM TC-99M SULFUR COLLOID KIT [Suspect]
     Indication: LIVER SCAN
     Dosage: 4.3mCi
     Route: 042
     Dates: start: 20121023
  2. TECHNETIUM TC-99M SULFUR COLLOID KIT [Suspect]
     Indication: SCAN SPLEEN
     Dosage: 4.3mCi
     Route: 042
     Dates: start: 20121023
  3. BACID [Concomitant]
  4. CITRACEL+D [Concomitant]
  5. MULTIVITAMIS [Concomitant]
  6. FLOMAX 0.4 MG [Concomitant]
  7. MELOXICAM 7.5MG [Concomitant]
  8. PEPCID 20MG [Concomitant]
  9. K+ 210MEQ [Concomitant]
  10. SYNTHROID 100MCG [Concomitant]
  11. TYLENOL [Concomitant]
  12. VITB+D [Concomitant]

REACTIONS (2)
  - Malaise [None]
  - General physical health deterioration [None]
